FAERS Safety Report 6462650-0 (Version None)
Quarter: 2009Q4

REPORT INFORMATION
  Report Type: 
  Country: None (occurrence: None)
  Receive Date: 20091130
  Receipt Date: 20091116
  Transmission Date: 20100525
  Serious: Yes (Hospitalization)
  Sender: FDA-Public Use
  Company Number: JP-PFIZER INC-2009287473

PATIENT
  Age: 81 Year
  Sex: Male
  Weight: 64 kg

DRUGS (15)
  1. SUNITINIB MALATE [Suspect]
     Indication: GASTROINTESTINAL STROMAL TUMOUR
     Dosage: 50 MG, 1X/DAY
     Route: 048
     Dates: start: 20090908, end: 20091005
  2. ASPIRIN [Suspect]
     Dosage: UNK
     Route: 048
  3. NAIXAN [Concomitant]
     Dosage: UNK
     Route: 048
  4. MUCOSTA [Concomitant]
     Dosage: UNK
     Route: 048
  5. TAKEPRON [Concomitant]
     Dosage: UNK
     Route: 048
  6. NAUZELIN [Concomitant]
     Dosage: UNK
     Route: 048
  7. MAGNESIUM OXIDE [Concomitant]
     Dosage: UNK
     Route: 048
  8. PREDONINE [Concomitant]
     Dosage: UNK
     Route: 048
  9. KREMEZIN [Concomitant]
     Dosage: UNK
     Route: 048
     Dates: start: 20090908
  10. ALDACTONE [Concomitant]
     Dosage: UNK
     Route: 048
  11. CRESTOR [Concomitant]
     Dosage: UNK
     Route: 048
  12. MUCOSOLVAN [Concomitant]
     Dosage: UNK
     Route: 048
  13. VASOLAN [Concomitant]
     Dosage: UNK
     Route: 048
  14. NOVORAPID [Concomitant]
     Dosage: UNK
     Route: 058
  15. OLMETEC [Concomitant]
     Dosage: UNK
     Route: 048

REACTIONS (1)
  - DECREASED APPETITE [None]
